FAERS Safety Report 6244681-9 (Version None)
Quarter: 2009Q2

REPORT INFORMATION
  Report Type: 
  Country: None (occurrence: None)
  Receive Date: 20090619
  Receipt Date: 20090501
  Transmission Date: 20091009
  Serious: No
  Sender: FDA-Public Use
  Company Number: ALL1-2009-01216

PATIENT
  Age: 53 Year
  Sex: Female
  Weight: 88.9 kg

DRUGS (5)
  1. VYVANSE [Suspect]
     Indication: ATTENTION DEFICIT/HYPERACTIVITY DISORDER
     Dosage: 20 MG, 1X/DAY:QD, ORAL
     Route: 048
     Dates: start: 20090411
  2. VYVANSE [Suspect]
     Indication: OBSESSIVE-COMPULSIVE DISORDER
     Dosage: 20 MG, 1X/DAY:QD, ORAL
     Route: 048
     Dates: start: 20090411
  3. PAXIL (PARXOETINE HYDROCHLORIDE) [Concomitant]
  4. ANAFRANIL [Concomitant]
  5. HYDROXYZINE [Concomitant]

REACTIONS (2)
  - HYPERHIDROSIS [None]
  - SWELLING FACE [None]
